FAERS Safety Report 7362309-1 (Version None)
Quarter: 2011Q1

REPORT INFORMATION
  Report Type: 
  Country: None (occurrence: None)
  Receive Date: 20110315
  Receipt Date: 20110315
  Transmission Date: 20110831
  Serious: Yes (Other)
  Sender: FDA-Public Use
  Company Number: None

PATIENT
  Sex: Female
  Weight: 88.905 kg

DRUGS (2)
  1. ACTONEL [Suspect]
     Indication: OSTEOPENIA
     Dosage: 150 MG Q MO PO
     Route: 048
     Dates: start: 20080801, end: 20101101
  2. FOSAMAX [Suspect]
     Dosage: 70 MG QWK PO
     Route: 048
     Dates: start: 20010501, end: 20080801

REACTIONS (2)
  - FEMUR FRACTURE [None]
  - FALL [None]
